FAERS Safety Report 7429719-5 (Version None)
Quarter: 2011Q2

REPORT INFORMATION
  Report Type: 
  Country: None (occurrence: None)
  Receive Date: 20110421
  Receipt Date: 20110413
  Transmission Date: 20111010
  Serious: Yes (Hospitalization)
  Sender: FDA-Public Use
  Company Number: US-BRISTOL-MYERS SQUIBB COMPANY-15674153

PATIENT
  Age: 78 Year
  Sex: Female

DRUGS (3)
  1. ACETAMINOPHEN [Suspect]
     Dates: start: 20110221
  2. ONGLYZA [Suspect]
     Dates: start: 20100809
  3. CELEBREX [Concomitant]

REACTIONS (1)
  - ANGIOEDEMA [None]
